FAERS Safety Report 5537740-7 (Version None)
Quarter: 2007Q4

REPORT INFORMATION
  Report Type: 
  Country: None (occurrence: None)
  Receive Date: 20071207
  Receipt Date: 20071129
  Transmission Date: 20080405
  Serious: Yes (Other)
  Sender: FDA-Public Use
  Company Number: US-PFIZER INC-2007102048

PATIENT
  Sex: Female
  Weight: 79.4 kg

DRUGS (10)
  1. CHANTIX [Suspect]
     Indication: SMOKING CESSATION THERAPY
  2. LIPITOR [Suspect]
  3. ALPRAZOLAM [Suspect]
  4. PLAVIX [Concomitant]
  5. PROTONIX [Concomitant]
  6. ISOSORBIDE DINITRATE [Concomitant]
  7. OXYCODONE HCL [Concomitant]
  8. ZETIA [Concomitant]
  9. METOPROLOL [Concomitant]
  10. SOMA [Concomitant]

REACTIONS (3)
  - CORONARY ARTERY BYPASS [None]
  - EMOTIONAL DISORDER [None]
  - STRESS [None]
